FAERS Safety Report 17129456 (Version 2)
Quarter: 2019Q4

REPORT INFORMATION
  Report Type: Spontaneous
  Country: FR (occurrence: FR)
  Receive Date: 20191209
  Receipt Date: 20191227
  Transmission Date: 20200122
  Serious: Yes (Other)
  Sender: FDA-Public Use
  Company Number: FR-009507513-1912FRA002374

PATIENT
  Age: 56 Year
  Sex: Male

DRUGS (6)
  1. PEGASYS [Suspect]
     Active Substance: PEGINTERFERON ALFA-2A
     Indication: HEPATITIS C
     Dosage: UNK, QW
     Dates: start: 20060403, end: 20060925
  2. VIRAFERONPEG [Suspect]
     Active Substance: PEGINTERFERON ALFA-2B
     Indication: HEPATITIS C
     Dosage: UNK, QW
     Dates: start: 200202, end: 200212
  3. REBETOL [Suspect]
     Active Substance: RIBAVIRIN
     Indication: HEPATITIS C
     Dosage: 200 MILLIGRAM, QD
     Route: 048
     Dates: start: 200202, end: 200212
  4. REBETOL [Suspect]
     Active Substance: RIBAVIRIN
     Dosage: 200 MILLIGRAM, QD
     Route: 048
     Dates: start: 20060403, end: 20060925
  5. REBETOL [Suspect]
     Active Substance: RIBAVIRIN
     Dosage: 200 MILLIGRAM, EVERY 6 DAYS
     Route: 048
     Dates: start: 20100830, end: 20110415
  6. PEGASYS [Suspect]
     Active Substance: PEGINTERFERON ALFA-2A
     Dosage: 180 MICROGRAM, QW
     Dates: start: 20100830, end: 20110415

REACTIONS (2)
  - Therapeutic embolisation [Recovered/Resolved]
  - Hepatocellular carcinoma [Not Recovered/Not Resolved]

NARRATIVE: CASE EVENT DATE: 20180614
